FAERS Safety Report 6421856-7 (Version None)
Quarter: 2009Q4

REPORT INFORMATION
  Report Type: 
  Country: None (occurrence: None)
  Receive Date: 20091029
  Receipt Date: 20091029
  Transmission Date: 20100525
  Serious: Yes (Other)
  Sender: FDA-Public Use
  Company Number: None

PATIENT
  Age: 50 Year
  Sex: Female
  Weight: 56.6996 kg

DRUGS (1)
  1. EQUETRO [Suspect]
     Indication: BIPOLAR DISORDER
     Dosage: 100 MG AM PO  ; 200 MG PM PO
     Route: 048
     Dates: start: 20091014, end: 20091028

REACTIONS (3)
  - ARTHRALGIA [None]
  - DYSMENORRHOEA [None]
  - PAIN IN EXTREMITY [None]
